FAERS Safety Report 15368614 (Version 1)
Quarter: 2018Q4

REPORT INFORMATION
  Report Type: Spontaneous
  Country: CN (occurrence: CN)
  Receive Date: 20180911
  Receipt Date: 20180911
  Transmission Date: 20190204
  Serious: Yes (Other)
  Sender: FDA-Public Use
  Company Number: CN-BAXTER-2018BAX023137

PATIENT
  Age: 49 Year
  Sex: Male
  Weight: 64 kg

DRUGS (18)
  1. AMINO ACID [Suspect]
     Active Substance: AMINO ACIDS
     Indication: NUTRITIONAL SUPPLEMENTATION
     Route: 041
     Dates: start: 20180510, end: 20180715
  2. AMINO ACID [Suspect]
     Active Substance: AMINO ACIDS
     Route: 041
     Dates: start: 20180520, end: 20180521
  3. DEXAMETHASONE SODIUM PHOSPHATE. [Suspect]
     Active Substance: DEXAMETHASONE SODIUM PHOSPHATE
     Indication: CHILLS
     Route: 042
     Dates: start: 20180523
  4. POTASSIUM CHLORIDE. [Suspect]
     Active Substance: POTASSIUM CHLORIDE
     Indication: NUTRITIONAL SUPPLEMENTATION
     Route: 041
     Dates: start: 20180520, end: 20180522
  5. GLUCOSE [Suspect]
     Active Substance: DEXTROSE
     Route: 065
     Dates: start: 20180523
  6. MEDIUM AND LONG CHAIN FAT EMULSION INJECTION (C8-24) [Suspect]
     Active Substance: GLYCERIN\MEDIUM-CHAIN TRIGLYCERIDES\PHOSPHOLIPID\SOYBEAN OIL
     Route: 041
     Dates: start: 20180515, end: 20180519
  7. COMPOUND AMINO ACID INJECTION (18AA-II) [Suspect]
     Active Substance: AMINO ACIDS
     Indication: NUTRITIONAL SUPPLEMENTATION
     Route: 041
     Dates: start: 20180523
  8. MEDIUM AND LONG CHAIN FAT EMULSION INJECTION (C8-24) [Suspect]
     Active Substance: GLYCERIN\MEDIUM-CHAIN TRIGLYCERIDES\PHOSPHOLIPID\SOYBEAN OIL
     Route: 041
     Dates: start: 20180522, end: 20180523
  9. NEUTRAL INSULIN [Suspect]
     Active Substance: INSULIN PORK\INSULIN PURIFIED PORK
     Indication: NUTRITIONAL SUPPLEMENTATION
     Route: 041
     Dates: start: 20180520, end: 20180522
  10. POTASSIUM CHLORIDE. [Suspect]
     Active Substance: POTASSIUM CHLORIDE
     Route: 041
     Dates: start: 20180523
  11. CONCENTRATED SODIUM CHLORIDE [Suspect]
     Active Substance: SODIUM CHLORIDE
     Indication: NUTRITIONAL SUPPLEMENTATION
     Dosage: CONCENTRATED SODIUM CHLORIDE INJECTION (100ML)
     Route: 041
     Dates: start: 20180523
  12. INSULIN [Suspect]
     Active Substance: INSULIN NOS
     Indication: NUTRITIONAL SUPPLEMENTATION
     Route: 041
     Dates: start: 20180523
  13. MEDIUM AND LONG CHAIN FAT EMULSION INJECTION (C8-24) [Suspect]
     Active Substance: GLYCERIN\MEDIUM-CHAIN TRIGLYCERIDES\PHOSPHOLIPID\SOYBEAN OIL
     Indication: NUTRITIONAL SUPPLEMENTATION
     Route: 041
     Dates: start: 20180510, end: 20180715
  14. POTASSIUM ASPARTATE [Suspect]
     Active Substance: POTASSIUM ASPARTATE
     Indication: NUTRITIONAL SUPPLEMENTATION
     Route: 041
     Dates: start: 20180520, end: 20180522
  15. GLUCOSE [Suspect]
     Active Substance: DEXTROSE
     Indication: NUTRITIONAL SUPPLEMENTATION
     Route: 041
     Dates: start: 20180520, end: 20180522
  16. ALANYL GLUTAMINE [Suspect]
     Active Substance: ALANYL GLUTAMINE
     Indication: NUTRITIONAL SUPPLEMENTATION
     Route: 041
     Dates: start: 20180523
  17. 0.9% SODIUM CHLORIDE INJECTION [Suspect]
     Active Substance: SODIUM CHLORIDE
     Indication: IRRIGATION THERAPY
     Route: 065
     Dates: start: 20180523
  18. GLUCOSE [Suspect]
     Active Substance: DEXTROSE
     Dosage: 50% GLUCOSE INJECTION (100 ML)
     Route: 041
     Dates: start: 20180523

REACTIONS (2)
  - Discoloured vomit [Recovered/Resolved]
  - Chills [Recovered/Resolved]

NARRATIVE: CASE EVENT DATE: 20180523
